FAERS Safety Report 10661631 (Version 2)
Quarter: 2015Q3

REPORT INFORMATION
  Report Type: Spontaneous
  Country: IT (occurrence: IT)
  Receive Date: 20141218
  Receipt Date: 20150812
  Transmission Date: 20151125
  Serious: Yes (Hospitalization)
  Sender: FDA-Public Use
  Company Number: IT-PFIZER INC-2014348761

PATIENT
  Age: 3 Year
  Sex: Male

DRUGS (2)
  1. GAVISCON [Concomitant]
     Active Substance: ALUMINUM HYDROXIDE\MAGNESIUM CARBONATE
     Dosage: UNK
  2. OTREON [Suspect]
     Active Substance: CEFPODOXIME
     Indication: OTITIS MEDIA
     Dosage: 17 ML, TOTAL
     Route: 048
     Dates: start: 20141206, end: 20141206

REACTIONS (2)
  - Hypotonia [Recovered/Resolved]
  - Unresponsive to stimuli [Recovered/Resolved]

NARRATIVE: CASE EVENT DATE: 20141206
